FAERS Safety Report 4300062-6 (Version None)
Quarter: 2004Q1

REPORT INFORMATION
  Report Type: 
  Country: None (occurrence: None)
  Receive Date: 20040220
  Receipt Date: 20040126
  Transmission Date: 20041129
  Serious: Yes (Death, Other)
  Sender: FDA-Public Use
  Company Number: 200410175JP

PATIENT
  Age: 74 Year
  Sex: Male
  Weight: 59 kg

DRUGS (12)
  1. ARAVA [Suspect]
     Indication: RHEUMATOID ARTHRITIS
     Route: 048
     Dates: start: 20040110, end: 20040122
  2. RIMATIL [Concomitant]
     Indication: RHEUMATOID ARTHRITIS
     Route: 048
  3. PREDONINE [Concomitant]
     Indication: INTERSTITIAL LUNG DISEASE
     Route: 048
  4. TAGAMET [Concomitant]
     Indication: PROPHYLAXIS AGAINST GASTROINTESTINAL ULCER
     Route: 048
  5. DIPYRIDAMOLE [Concomitant]
     Indication: SPUTUM TEST
     Route: 048
  6. SELBEX [Concomitant]
     Indication: GASTRITIS
     Route: 048
  7. LASIX [Concomitant]
     Indication: CARDIAC FAILURE
  8. LANIRAPID [Concomitant]
     Indication: CARDIAC FAILURE
     Route: 048
  9. ENALAPRIL MALEATE [Concomitant]
     Indication: HYPERTENSION
     Route: 048
  10. WARFARIN SODIUM [Concomitant]
     Indication: ANGINA PECTORIS
     Route: 048
  11. ITOROL [Concomitant]
     Indication: ANGINA PECTORIS
     Route: 048
  12. ARTIST [Concomitant]
     Indication: HYPERTENSION
     Route: 048

REACTIONS (6)
  - ABDOMINAL DISTENSION [None]
  - ABDOMINAL PAIN UPPER [None]
  - ARTHRALGIA [None]
  - CHOKING [None]
  - INTERSTITIAL LUNG DISEASE [None]
  - JOINT STIFFNESS [None]
